FAERS Safety Report 6864615-3 (Version None)
Quarter: 2010Q3

REPORT INFORMATION
  Report Type: 
  Country: None (occurrence: None)
  Receive Date: 20100721
  Receipt Date: 20080328
  Transmission Date: 20110219
  Serious: No
  Sender: FDA-Public Use
  Company Number: US-PFIZER INC-2008028324

PATIENT
  Sex: Female
  Weight: 72.6 kg

DRUGS (6)
  1. CHANTIX [Suspect]
     Indication: SMOKING CESSATION THERAPY
     Dates: start: 20080325
  2. ALCOHOL [Suspect]
  3. LOVASTATIN [Concomitant]
     Indication: BLOOD CHOLESTEROL INCREASED
  4. ZOLOFT [Concomitant]
     Indication: DEPRESSION
  5. ZOLOFT [Concomitant]
     Indication: OBSESSIVE-COMPULSIVE DISORDER
  6. ZOLOFT [Concomitant]
     Indication: DEPRESSED MOOD

REACTIONS (7)
  - ALCOHOL INTOLERANCE [None]
  - COGNITIVE DISORDER [None]
  - DRUG INEFFECTIVE [None]
  - FEELING ABNORMAL [None]
  - HEADACHE [None]
  - HYPERHIDROSIS [None]
  - NERVOUSNESS [None]
